FAERS Safety Report 8990930 (Version 1)
Quarter: 2012Q4

REPORT INFORMATION
  Report Type: Spontaneous
  Country: BR (occurrence: None)
  Receive Date: 20121220
  Receipt Date: 20121220
  Transmission Date: 20130627
  Serious: Yes (Other)
  Sender: FDA-Public Use
  Company Number: BR-1194923

PATIENT
  Age: 52 Year
  Sex: Female

DRUGS (1)
  1. TEARS NATURALE FORTE [Suspect]
     Dosage: (2 GTT Tid OU Ophthalmic)
     Route: 047
     Dates: start: 201110, end: 20121025

REACTIONS (3)
  - Fall [None]
  - Foetal death [None]
  - Maternal drugs affecting foetus [None]
